FAERS Safety Report 19034791 (Version 1)
Quarter: 2021Q1

REPORT INFORMATION
  Report Type: Spontaneous
  Country: US (occurrence: US)
  Receive Date: 20210320
  Receipt Date: 20210320
  Transmission Date: 20210420
  Serious: No
  Sender: FDA-Public Use
  Company Number: US-SA-2021SA084722

PATIENT
  Age: 79 Year
  Sex: Male

DRUGS (1)
  1. FLOMAX [Suspect]
     Active Substance: TAMSULOSIN HYDROCHLORIDE
     Dosage: DRUG STRUCTURE DOSAGE : 0.4 MG
     Dates: start: 20110310

REACTIONS (4)
  - Laryngitis [Unknown]
  - Sinusitis [Unknown]
  - Condition aggravated [Unknown]
  - Pharyngitis [Unknown]

NARRATIVE: CASE EVENT DATE: 20210310
